FAERS Safety Report 24440920 (Version 2)
Quarter: 2024Q4

REPORT INFORMATION
  Report Type: Report from Study
  Country: US (occurrence: US)
  Receive Date: 20241016
  Receipt Date: 20241017
  Transmission Date: 20250114
  Serious: No
  Sender: ROCHE
  Company Number: US-ROCHE-3441790

PATIENT
  Age: 39 Year
  Sex: Male

DRUGS (4)
  1. HEMLIBRA [Suspect]
     Active Substance: EMICIZUMAB-KXWH
     Indication: Factor VIII deficiency
     Dosage: INJECT 0.72 ML UNDER THE SKIN ONCE WEEKLY.
     Route: 058
  2. HEMLIBRA [Suspect]
     Active Substance: EMICIZUMAB-KXWH
     Dosage: INJECT UNDER THE SKIN 108 MG (0.72 ML)?STRENGTH : 60/MG/0.4 ML
     Route: 058
     Dates: start: 20230525
  3. CELECOXIB [Concomitant]
     Active Substance: CELECOXIB
  4. XYNTHA [Concomitant]
     Active Substance: ANTIHEMOPHILIC FACTOR, HUMAN RECOMBINANT RESIDUES 743-1636 DELETED
     Dosage: 2000 UNITS ORN DAILY

REACTIONS (2)
  - Medication error [Unknown]
  - No adverse event [Unknown]
